FAERS Safety Report 4632881-0 (Version None)
Quarter: 2005Q2

REPORT INFORMATION
  Report Type: 
  Country: None (occurrence: None)
  Receive Date: 20050411
  Receipt Date: 20050411
  Transmission Date: 20051028
  Serious: Yes (Other)
  Sender: FDA-Public Use
  Company Number: None

PATIENT
  Age: 70 Year
  Sex: Female
  Weight: 81.6475 kg

DRUGS (6)
  1. ACLORO (HYDROQUINONE USP 4%) EMULSION [Suspect]
     Indication: DRY SKIN
     Dosage: APPLY TO NOSE AND ENTIRE FACE TWICE DAILY
     Dates: start: 20050328
  2. ACLORO (HYDROQUINONE USP 4%) EMULSION [Suspect]
     Indication: SKIN DISCOLOURATION
     Dosage: APPLY TO NOSE AND ENTIRE FACE TWICE DAILY
     Dates: start: 20050328
  3. NORVASC [Concomitant]
  4. ALTACE [Concomitant]
  5. POTASSIUM SUPPLEMENT [Concomitant]
  6. HUMULIN 70/30 [Concomitant]

REACTIONS (3)
  - APPLICATION SITE ERYTHEMA [None]
  - APPLICATION SITE IRRITATION [None]
  - APPLICATION SITE WARMTH [None]
